FAERS Safety Report 11079323 (Version 2)
Quarter: 2015Q2

REPORT INFORMATION
  Report Type: Spontaneous
  Country: CN (occurrence: CN)
  Receive Date: 20150430
  Receipt Date: 20150501
  Transmission Date: 20150821
  Serious: Yes (Other)
  Sender: FDA-Public Use
  Company Number: CN-JNJFOC-20150412500

PATIENT
  Age: 48 Year
  Sex: Male

DRUGS (6)
  1. PERPHENAZINE. [Concomitant]
     Active Substance: PERPHENAZINE
     Route: 065
  2. BENZHEXOL HYDROCHLORIDE [Concomitant]
     Active Substance: TRIHEXYPHENIDYL HYDROCHLORIDE
     Route: 065
  3. RISPERDAL [Suspect]
     Active Substance: RISPERIDONE
     Indication: NERVOUS SYSTEM DISORDER
     Route: 048
     Dates: start: 201501
  4. RISPERDAL [Suspect]
     Active Substance: RISPERIDONE
     Indication: NERVOUS SYSTEM DISORDER
     Route: 048
     Dates: start: 201306
  5. RISPERDAL [Suspect]
     Active Substance: RISPERIDONE
     Indication: NERVOUS SYSTEM DISORDER
     Route: 048
     Dates: start: 20150128
  6. ESTAZOLAM. [Concomitant]
     Active Substance: ESTAZOLAM
     Route: 065

REACTIONS (6)
  - Product use issue [Unknown]
  - Ear discomfort [Recovered/Resolved]
  - Deafness [Recovered/Resolved]
  - Suspected counterfeit product [Unknown]
  - Dry mouth [Recovered/Resolved]
  - Feeling hot [Recovered/Resolved]
